FAERS Safety Report 19779138 (Version 1)
Quarter: 2021Q3

REPORT INFORMATION
  Report Type: Report from Study
  Country: US (occurrence: US)
  Receive Date: 20210902
  Receipt Date: 20210902
  Transmission Date: 20211014
  Serious: Yes (Other)
  Sender: FDA-Public Use
  Company Number: US-EMD SERONO-9261582

PATIENT
  Age: 45 Year
  Sex: Female

DRUGS (1)
  1. REBIF [Suspect]
     Active Substance: INTERFERON BETA-1A
     Indication: MULTIPLE SCLEROSIS
     Route: 058
     Dates: start: 20131223

REACTIONS (6)
  - Heart rate increased [Recovered/Resolved]
  - Hysterectomy [Unknown]
  - Endometriosis [Unknown]
  - Wound haemorrhage [Unknown]
  - Anaemia [Unknown]
  - Post procedural complication [Unknown]

NARRATIVE: CASE EVENT DATE: 202107
